FAERS Safety Report 7208859-X (Version None)
Quarter: 2010Q4

REPORT INFORMATION
  Report Type: 
  Country: None (occurrence: None)
  Receive Date: 20101222
  Receipt Date: 20101226
  Transmission Date: 20110411
  Serious: Yes (Other)
  Sender: FDA-Public Use
  Company Number: PHEH2001US10456

PATIENT
  Age: 75 Year
  Sex: Female
  Weight: 65.8 kg

DRUGS (6)
  1. DENAVIR [Suspect]
     Indication: LIP DRY
  2. TEVETEN [Concomitant]
  3. ATENOLOL [Concomitant]
  4. ASPIRIN [Concomitant]
  5. NITROGLYCERIN [Concomitant]
  6. TIMOPTIC [Concomitant]

REACTIONS (2)
  - AGEUSIA [None]
  - HYPOAESTHESIA ORAL [None]
